FAERS Safety Report 14803497 (Version 1)
Quarter: 2018Q2

REPORT INFORMATION
  Report Type: Spontaneous
  Country: PL (occurrence: PL)
  Receive Date: 20180425
  Receipt Date: 20180425
  Transmission Date: 20180711
  Serious: Yes (Other)
  Sender: FDA-Public Use
  Company Number: PL-TEVA-2017-PL-837631

PATIENT
  Age: 1 Year
  Sex: Female
  Weight: 10.9 kg

DRUGS (8)
  1. DEXAMETHASONE. [Concomitant]
     Active Substance: DEXAMETHASONE
     Route: 063
     Dates: start: 20170408
  2. RELSED [Concomitant]
     Route: 048
     Dates: start: 20170413
  3. DEXAMETHASONE. [Concomitant]
     Active Substance: DEXAMETHASONE
     Route: 042
     Dates: start: 20170408
  4. ENTEROL [Concomitant]
     Route: 063
     Dates: start: 20170408, end: 20170410
  5. RELSED [Concomitant]
     Route: 063
     Dates: start: 20170413
  6. VANCOMYCIN [Suspect]
     Active Substance: VANCOMYCIN
     Route: 042
     Dates: start: 20170408, end: 20170408
  7. VANCOMYCIN [Suspect]
     Active Substance: VANCOMYCIN
     Route: 063
     Dates: start: 20170408, end: 20170408
  8. ENTEROL [Concomitant]
     Route: 042
     Dates: start: 20170408, end: 20170410

REACTIONS (1)
  - Erythema [Unknown]

NARRATIVE: CASE EVENT DATE: 20170408
